FAERS Safety Report 8173869-5 (Version None)
Quarter: 2012Q1

REPORT INFORMATION
  Report Type: 
  Country: None (occurrence: None)
  Receive Date: 20120229
  Receipt Date: 20120221
  Transmission Date: 20120608
  Serious: Yes (Hospitalization)
  Sender: FDA-Public Use
  Company Number: IE-US-EMD SERONO, INC.-7114750

PATIENT
  Sex: Female

DRUGS (4)
  1. PRAMIPEXOLE DIHYDROCHLORIDE [Concomitant]
     Indication: RESTLESS LEGS SYNDROME
     Route: 048
     Dates: start: 20120101
  2. ZILEZE [Concomitant]
     Indication: SLEEP DISORDER THERAPY
     Route: 048
  3. REBIF [Suspect]
     Indication: RELAPSING-REMITTING MULTIPLE SCLEROSIS
     Route: 058
     Dates: start: 20040721
  4. CYMBALTA [Concomitant]
     Indication: RESTLESS LEGS SYNDROME
     Route: 048
     Dates: start: 20120101

REACTIONS (5)
  - TREATMENT NONCOMPLIANCE [None]
  - FALL [None]
  - PNEUMONIA [None]
  - RESTLESS LEGS SYNDROME [None]
  - MUSCULAR WEAKNESS [None]
